FAERS Safety Report 4906040-8 (Version None)
Quarter: 2006Q1

REPORT INFORMATION
  Report Type: 
  Country: None (occurrence: None)
  Receive Date: 20060207
  Receipt Date: 20060207
  Transmission Date: 20060701
  Serious: Yes (Life-Threatening, Hospitalization)
  Sender: FDA-Public Use
  Company Number: None

PATIENT
  Age: 8 Month
  Sex: Male
  Weight: 7 kg

DRUGS (6)
  1. PREDNISONE [Suspect]
     Indication: ACUTE LYMPHOCYTIC LEUKAEMIA
     Dosage: 15 MG EVERY DAY PO
     Route: 048
     Dates: start: 20060124, end: 20060201
  2. PREDNISONE [Suspect]
     Indication: MALIGNANT NEOPLASM PROGRESSION
     Dosage: 15 MG EVERY DAY PO
     Route: 048
     Dates: start: 20060124, end: 20060201
  3. PREDNISONE [Suspect]
     Indication: NEOPLASM RECURRENCE
     Dosage: 15 MG EVERY DAY PO
     Route: 048
     Dates: start: 20060124, end: 20060201
  4. VINCRISTINE [Concomitant]
  5. TIT [Concomitant]
  6. POG [Concomitant]

REACTIONS (8)
  - CENTRAL LINE INFECTION [None]
  - CORYNEBACTERIUM INFECTION [None]
  - CRYING [None]
  - FREQUENT BOWEL MOVEMENTS [None]
  - HAEMATOCHEZIA [None]
  - MUCOUS STOOLS [None]
  - ORAL INTAKE REDUCED [None]
  - PNEUMATOSIS INTESTINALIS [None]
